FAERS Safety Report 10032996 (Version 3)
Quarter: 2014Q2

REPORT INFORMATION
  Report Type: Spontaneous
  Country: JP (occurrence: JP)
  Receive Date: 20140324
  Receipt Date: 20140502
  Transmission Date: 20141212
  Serious: Yes (Hospitalization)
  Sender: FDA-Public Use
  Company Number: JP-UCBSA-114744

PATIENT
  Age: 73 Year
  Sex: Male
  Weight: 68.2 kg

DRUGS (5)
  1. CIMZIA [Suspect]
     Indication: RHEUMATOID ARTHRITIS
     Route: 058
     Dates: start: 20130821
  2. BUCILLAMINE [Concomitant]
     Dosage: DAILY DOSE: 200 MG
     Route: 048
     Dates: start: 201205, end: 20131225
  3. METHOTREXATE [Concomitant]
     Dosage: DAILY DOSE: 6 MG
     Route: 048
     Dates: start: 201010, end: 20131225
  4. FOLIAMIN [Concomitant]
     Dosage: DAILY DOSE: 15 MG
     Route: 048
     Dates: start: 201010, end: 20131225
  5. PYRIDOXAL [Concomitant]
     Dosage: DAILY DOSE: 20 MG
     Route: 048
     Dates: start: 201205, end: 20131225

REACTIONS (1)
  - Organising pneumonia [Recovering/Resolving]
